FAERS Safety Report 11005208 (Version 1)
Quarter: 2015Q2

REPORT INFORMATION
  Report Type: Spontaneous
  Country: DE (occurrence: DE)
  Receive Date: 20150409
  Receipt Date: 20150409
  Transmission Date: 20150821
  Serious: Yes (Other)
  Sender: FDA-Public Use
  Company Number: GXKR2015DE001874

PATIENT
  Age: 57 Year
  Sex: Female
  Weight: 79 kg

DRUGS (9)
  1. BELOZOK [Suspect]
     Active Substance: METOPROLOL SUCCINATE
     Dosage: 1 DF, QD
  2. GRANISETRON [Suspect]
     Active Substance: GRANISETRON
     Indication: NAUSEA
     Dosage: 2 MG, UNK
     Route: 048
     Dates: start: 20150126, end: 20150225
  3. TEMOZO CELL [Suspect]
     Active Substance: TEMOZOLOMIDE
     Indication: GLIOBLASTOMA
     Dosage: 130 MG, UNK
     Dates: start: 20150126, end: 20150225
  4. PANTOZOL [Suspect]
     Active Substance: PANTOPRAZOLE SODIUM
     Indication: PROPHYLAXIS
     Dosage: 40 MG, QD
     Dates: start: 201412
  5. CARMEN [Suspect]
     Active Substance: LERCANIDIPINE
     Dosage: 1 DF, QD
  6. SULFAMETHOXAZOLE AND TRIMETHOPRIM [Suspect]
     Active Substance: SULFAMETHOXAZOLE\TRIMETHOPRIM
     Indication: ANTIFUNGAL PROPHYLAXIS
     Dosage: 250 MG, BID
     Route: 048
     Dates: start: 20150126
  7. KEPPRA [Suspect]
     Active Substance: LEVETIRACETAM
     Indication: EPILEPSY
     Dosage: 1000 MG, BID
     Route: 048
     Dates: start: 201412
  8. TORASEMIDE [Suspect]
     Active Substance: TORSEMIDE
     Dosage: 20 MG, QD
  9. DEXAMETASON [Suspect]
     Active Substance: DEXAMETHASONE
     Indication: PROPHYLAXIS
     Dosage: 8 MG, TID
     Route: 048
     Dates: start: 201412

REACTIONS (2)
  - Leukopenia [Not Recovered/Not Resolved]
  - Thrombocytopenia [Not Recovered/Not Resolved]

NARRATIVE: CASE EVENT DATE: 20150228
